FAERS Safety Report 16085210 (Version 2)
Quarter: 2019Q1

REPORT INFORMATION
  Report Type: Spontaneous
  Country: DE (occurrence: DE)
  Receive Date: 20190318
  Receipt Date: 20190327
  Transmission Date: 20190418
  Serious: Yes (Other)
  Sender: FDA-Public Use
  Company Number: DE-ENDO PHARMACEUTICALS INC-2019-102473

PATIENT
  Age: 55 Year
  Weight: 78 kg

DRUGS (1)
  1. AVEED [Suspect]
     Active Substance: TESTOSTERONE UNDECANOATE
     Indication: PRODUCT USED FOR UNKNOWN INDICATION
     Dosage: UNK UNKNOWN, UNKNOWN
     Route: 030
     Dates: start: 20190307

REACTIONS (2)
  - Hypersensitivity [Recovering/Resolving]
  - Pulmonary oil microembolism [Recovering/Resolving]

NARRATIVE: CASE EVENT DATE: 20190307
